FAERS Safety Report 9633576 (Version 2)
Quarter: 2013Q4

REPORT INFORMATION
  Report Type: Report from Study
  Country: BR (occurrence: BR)
  Receive Date: 20131021
  Receipt Date: 20131115
  Transmission Date: 20140711
  Serious: Yes (Other)
  Sender: FDA-Public Use
  Company Number: PHHY2013BR117822

PATIENT
  Age: 68 Year
  Sex: Female

DRUGS (10)
  1. FORASEQ [Suspect]
     Indication: BRONCHITIS
     Dosage: 1 DF, BID (IN THE MORNING AND AT NIGHT)
     Route: 048
     Dates: start: 201101, end: 201102
  2. FORASEQ [Suspect]
     Dosage: 2 DF, DAILY
     Route: 048
     Dates: start: 20131017
  3. DIOVAN AMLO FIX [Suspect]
     Indication: HYPERTENSION
     Dosage: 1 DF, QD (1 TABLET IN THE MORNING)
  4. DIOVAN [Suspect]
     Dosage: 320 MG, UNK
  5. DIOVAN [Suspect]
     Dosage: 160 MG, UNK
  6. CRESTOR [Concomitant]
     Indication: BLOOD CHOLESTEROL ABNORMAL
     Dosage: 1 DF, DAILY
     Route: 048
  7. GLIFAGE [Concomitant]
     Indication: DIABETES MELLITUS
     Dosage: 1 DF, DAILY
     Route: 048
  8. VITAMIN E [Concomitant]
     Indication: HEPATIC STEATOSIS
     Dosage: 1 DF, DAILY
     Route: 048
  9. VITAMIN D//COLECALCIFEROL [Concomitant]
     Indication: BONE DISORDER
     Dosage: 7 DRP, DAILY
     Route: 048
  10. OMEPRAZOLE [Concomitant]
     Indication: GASTRIC DISORDER
     Dosage: 1 DF, DAILY
     Route: 048

REACTIONS (8)
  - Osteoarthritis [Recovering/Resolving]
  - Bronchitis [Recovering/Resolving]
  - Condition aggravated [Recovering/Resolving]
  - Influenza [Recovered/Resolved]
  - Palpitations [Not Recovered/Not Resolved]
  - Dyspnoea [Recovered/Resolved]
  - Cough [Recovered/Resolved]
  - Dizziness [Not Recovered/Not Resolved]
